FAERS Safety Report 6842162-2 (Version None)
Quarter: 2010Q3

REPORT INFORMATION
  Report Type: 
  Country: None (occurrence: None)
  Receive Date: 20100714
  Receipt Date: 20070720
  Transmission Date: 20110219
  Serious: No
  Sender: FDA-Public Use
  Company Number: US-PFIZER INC-2007061728

PATIENT
  Sex: Female
  Weight: 67.1 kg

DRUGS (4)
  1. CHANTIX [Suspect]
     Indication: SMOKING CESSATION THERAPY
     Dates: start: 20070701, end: 20070701
  2. LORTAB [Concomitant]
     Indication: PAIN
     Dosage: 1-2 TABLESPOONS
  3. VALIUM [Concomitant]
     Indication: ANXIETY
     Dosage: 6 EVERY 1 HOURS
  4. PROMETHAZINE [Concomitant]
     Indication: NAUSEA

REACTIONS (1)
  - CONSTIPATION [None]
